FAERS Safety Report 10775112 (Version 1)
Quarter: 2015Q1

REPORT INFORMATION
  Report Type: Spontaneous
  Country: US (occurrence: None)
  Receive Date: 20150206
  Receipt Date: 20150206
  Transmission Date: 20150721
  Serious: Yes (Hospitalization)
  Sender: FDA-Public Use
  Company Number: HYP201306-000027

PATIENT
  Age: 2 Month
  Sex: Female
  Weight: 5.84 kg

DRUGS (2)
  1. RAVICTI [Suspect]
     Active Substance: GLYCEROL PHENYLBUTYRATE
     Indication: UREA CYCLE ENZYME DEFICIENCY
     Route: 048
     Dates: start: 20130524, end: 20130528
  2. ARGININE [Concomitant]
     Active Substance: ARGININE

REACTIONS (3)
  - Vomiting [None]
  - Hyperammonaemic crisis [None]
  - Hypersomnia [None]

NARRATIVE: CASE EVENT DATE: 20130525
